FAERS Safety Report 8465123-9 (Version None)
Quarter: 2012Q2

REPORT INFORMATION
  Report Type: 
  Country: None (occurrence: None)
  Receive Date: 20120626
  Receipt Date: 20120612
  Transmission Date: 20120825
  Serious: Yes (Other)
  Sender: FDA-Public Use
  Company Number: GB-TEVA-342577ISR

PATIENT
  Age: 39 Year
  Sex: Female

DRUGS (4)
  1. QUETIAPINE [Suspect]
     Indication: SCHIZOPHRENIA
     Route: 048
     Dates: start: 20010101
  2. QUETIAPINE [Suspect]
     Dosage: 300 MILLIGRAM; 250 MG AT NIGHT AND 50 MG IN THE MORNING
     Route: 048
  3. QUETIAPINE [Suspect]
     Route: 048
  4. QUETIAPINE [Suspect]
     Dosage: 300 MILLIGRAM; 200 MG AT NIGHT AND 100  MG IN THE MORNING
     Route: 048
     Dates: start: 20120309

REACTIONS (4)
  - BETA HAEMOLYTIC STREPTOCOCCAL INFECTION [None]
  - ASHERMAN'S SYNDROME [None]
  - LIVE BIRTH [None]
  - MATERNAL EXPOSURE DURING PREGNANCY [None]
